FAERS Safety Report 8407041-8 (Version None)
Quarter: 2012Q2

REPORT INFORMATION
  Report Type: 
  Country: None (occurrence: None)
  Receive Date: 20120604
  Receipt Date: 20120529
  Transmission Date: 20120825
  Serious: Yes (Hospitalization)
  Sender: FDA-Public Use
  Company Number: PHHY2012BR036155

PATIENT
  Sex: Female
  Weight: 64 kg

DRUGS (1)
  1. TEGRETOL [Suspect]
     Indication: BIPOLAR DISORDER
     Dosage: 2 DF, (1 TABLET IN THE MORNING AND 1 TABLET AT NIGHT)
     Route: 048

REACTIONS (6)
  - DYSPNOEA [None]
  - PRURITUS GENERALISED [None]
  - ERYTHEMA [None]
  - FEELING HOT [None]
  - SKIN EXFOLIATION [None]
  - BLISTER [None]
